FAERS Safety Report 23103259 (Version 1)
Quarter: 2023Q4

REPORT INFORMATION
  Report Type: Spontaneous
  Country: VN (occurrence: VN)
  Receive Date: 20231025
  Receipt Date: 20231025
  Transmission Date: 20240110
  Serious: Yes (Hospitalization, Other)
  Sender: FDA-Public Use
  Company Number: VN-MACLEODS PHARMACEUTICALS US LTD-MAC2023043959

PATIENT

DRUGS (2)
  1. FEBUXOSTAT [Suspect]
     Active Substance: FEBUXOSTAT
     Indication: Gout
     Dosage: 40 MILLIGRAM
     Route: 065
  2. COLCHICINE [Suspect]
     Active Substance: COLCHICINE
     Indication: Gout
     Dosage: 1 MILLIGRAM, QD (1000 MICROGRAM)
     Route: 065

REACTIONS (4)
  - Acute kidney injury [Recovered/Resolved]
  - Myopathy [Recovered/Resolved]
  - Toxicity to various agents [Unknown]
  - Self-medication [Unknown]
